FAERS Safety Report 6894399-4 (Version None)
Quarter: 2010Q3

REPORT INFORMATION
  Report Type: 
  Country: None (occurrence: None)
  Receive Date: 20100802
  Receipt Date: 20100722
  Transmission Date: 20110219
  Serious: Yes (Death, Life-Threatening)
  Sender: FDA-Public Use
  Company Number: US-ELI_LILLY_AND_COMPANY-US201006007335

PATIENT
  Sex: Female
  Weight: 73.016 kg

DRUGS (14)
  1. PEMETREXED [Suspect]
     Indication: NON-SMALL CELL LUNG CANCER
     Dosage: 500 MG/M2, OTHER
     Route: 042
     Dates: start: 20100318, end: 20100609
  2. CARBOPLATIN [Suspect]
     Indication: NON-SMALL CELL LUNG CANCER
     Dosage: 6 D/F, OTHER
     Route: 042
     Dates: start: 20100318, end: 20100609
  3. BEVACIZUMAB [Suspect]
     Indication: NON-SMALL CELL LUNG CANCER
     Dosage: 15 MG/KG, OTHER
     Route: 042
     Dates: start: 20100318, end: 20100609
  4. VITAMIN B-12 [Concomitant]
     Indication: PROPHYLAXIS
     Dosage: UNK, OTHER
     Route: 030
     Dates: start: 20100310
  5. FOLIC ACID [Concomitant]
     Indication: PROPHYLAXIS
     Dosage: 1 MG, DAILY (1/D)
     Route: 048
     Dates: start: 20100310
  6. LEXAPRO [Concomitant]
     Indication: DEPRESSION
  7. ZOFRAN [Concomitant]
     Indication: NAUSEA
     Dates: start: 20100318
  8. DECADRON [Concomitant]
     Indication: ASTHMA
     Dates: start: 20100318
  9. PERCOCET [Concomitant]
     Indication: PAIN
     Dates: start: 20100318
  10. WELLBUTRIN [Concomitant]
     Indication: DEPRESSION
  11. VITAMIN D [Concomitant]
     Indication: SUPPLEMENTATION THERAPY
     Dates: start: 20100310
  12. DIOVAN [Concomitant]
     Indication: HYPERTENSION
     Dates: start: 20060101
  13. OXYCONTIN [Concomitant]
     Indication: PAIN
     Dosage: 20 MG, UNK
     Dates: start: 20100310
  14. ATIVAN [Concomitant]
     Indication: NAUSEA
     Dates: start: 20100609

REACTIONS (1)
  - CARDIAC ARREST [None]
